FAERS Safety Report 6754444-3 (Version None)
Quarter: 2010Q2

REPORT INFORMATION
  Report Type: 
  Country: None (occurrence: None)
  Receive Date: 20100603
  Receipt Date: 20100521
  Transmission Date: 20101027
  Serious: Yes (Hospitalization)
  Sender: FDA-Public Use
  Company Number: PHHY2010US33009

PATIENT
  Age: 6 Year
  Sex: Male

DRUGS (1)
  1. EXJADE [Suspect]

REACTIONS (5)
  - ABDOMINAL PAIN [None]
  - CENTRAL VENOUS CATHETER REMOVAL [None]
  - CONSTIPATION [None]
  - INFECTION [None]
  - PAIN [None]
